FAERS Safety Report 8863305 (Version 3)
Quarter: 2013Q4

REPORT INFORMATION
  Report Type: Spontaneous
  Country: US (occurrence: US)
  Receive Date: 20121025
  Receipt Date: 20131018
  Transmission Date: 20140711
  Serious: Yes (Other)
  Sender: FDA-Public Use
  Company Number: US-PFIZER INC-2012265285

PATIENT
  Sex: Female

DRUGS (3)
  1. CELEBREX [Suspect]
     Indication: OSTEOARTHRITIS
     Dosage: 100 MG, 2X/DAY
  2. LYRICA [Suspect]
     Dosage: 100 MG, 3X/DAY
  3. LYRICA [Suspect]
     Dosage: 100 MG, 1X/DAY

REACTIONS (16)
  - Foot fracture [Unknown]
  - Gait disturbance [Unknown]
  - Drug dose omission [Unknown]
  - Drug hypersensitivity [Unknown]
  - Fall [Unknown]
  - Bone pain [Unknown]
  - Migraine [Unknown]
  - Depression [Unknown]
  - Drug intolerance [Unknown]
  - Burning sensation [Unknown]
  - Paraesthesia [Unknown]
  - Fatigue [Unknown]
  - Therapeutic response unexpected [Unknown]
  - Arthritis [Unknown]
  - Pain [Unknown]
  - Arthralgia [Unknown]
